FAERS Safety Report 8850015 (Version 2)
Quarter: 2016Q1

REPORT INFORMATION
  Report Type: Spontaneous
  Country: AT (occurrence: AT)
  Receive Date: 20121019
  Receipt Date: 20160205
  Transmission Date: 20160526
  Serious: Yes (Hospitalization)
  Sender: FDA-Public Use
  Company Number: AT-BRISTOL-MYERS SQUIBB COMPANY-17014242

PATIENT
  Age: 47 Year
  Sex: Male

DRUGS (3)
  1. SELOKEEN [Concomitant]
     Active Substance: METOPROLOL
     Indication: PRODUCT USED FOR UNKNOWN INDICATION
     Dosage: 47.5 MG, UNK
     Route: 065
     Dates: start: 2007, end: 20120206
  2. IXEL [Suspect]
     Active Substance: MILNACIPRAN HYDROCHLORIDE
     Indication: PANIC DISORDER
     Dosage: 150 MG, QD
     Route: 065
     Dates: start: 201111, end: 20120203
  3. ABILIFY [Suspect]
     Active Substance: ARIPIPRAZOLE
     Indication: PANIC DISORDER
     Dosage: 15 MG, QD
     Route: 065
     Dates: start: 201111, end: 20120203

REACTIONS (2)
  - Off label use [Unknown]
  - Panic disorder [Recovering/Resolving]
